FAERS Safety Report 9229643 (Version 5)
Quarter: 2014Q2

REPORT INFORMATION
  Report Type: Spontaneous
  Country: FR (occurrence: FR)
  Receive Date: 20130415
  Receipt Date: 20140417
  Transmission Date: 20141212
  Serious: Yes (Hospitalization, Disabling, Other)
  Sender: FDA-Public Use
  Company Number: FR-AMGEN-FRASP2013025168

PATIENT
  Age: 70 Year
  Sex: Female

DRUGS (14)
  1. PROLIA [Suspect]
     Indication: SPONDYLITIS
     Dosage: 60 MG, UNK
     Route: 058
     Dates: start: 20120321, end: 20120910
  2. PROLIA [Suspect]
     Indication: OSTEOPOROSIS
  3. PROPOFOL [Concomitant]
     Dosage: 1 DF, UNK
     Route: 042
     Dates: start: 20121127, end: 20121127
  4. PERFALGAN [Concomitant]
     Dosage: 1 DF, UNK
     Route: 042
     Dates: start: 20121127, end: 20121127
  5. SPASFON                            /00765801/ [Concomitant]
     Dosage: 1 DF, UNK
     Route: 042
     Dates: start: 20121127, end: 20121127
  6. LEVOTHYROX [Concomitant]
     Dosage: 50 MUG, QD
  7. AVLOCARDYL                         /00030001/ [Concomitant]
     Dosage: 1 DF, UNK
     Route: 048
  8. ADANCOR [Concomitant]
     Dosage: 2 DF, UNK
     Route: 048
  9. INIPOMP [Concomitant]
     Dosage: 1 DF, UNK
     Route: 048
  10. PLAVIX [Concomitant]
     Dosage: 1 DF, UNK
     Route: 048
  11. LEXOMIL [Concomitant]
     Dosage: 0.5 DF, UNK
     Route: 048
  12. DUROGESIC [Concomitant]
     Dosage: 50 MG, QH
     Route: 062
  13. ACTISKENAN [Concomitant]
     Dosage: 10 MG, UNK
     Route: 048
  14. LYRICA [Concomitant]
     Dosage: 2 DF, UNK
     Route: 048

REACTIONS (4)
  - Vasculitis necrotising [Not Recovered/Not Resolved]
  - Vascular purpura [Unknown]
  - Skin necrosis [Unknown]
  - Paraesthesia [Unknown]
